FAERS Safety Report 14305717 (Version 2)
Quarter: 2018Q4

REPORT INFORMATION
  Report Type: Spontaneous
  Country: US (occurrence: US)
  Receive Date: 20171219
  Receipt Date: 20181022
  Transmission Date: 20190204
  Serious: Yes (Death, Other)
  Sender: FDA-Public Use
  Company Number: PHHY2017US188884

PATIENT
  Age: 66 Year
  Sex: Male

DRUGS (1)
  1. METHYLPREDNISOLONE. [Suspect]
     Active Substance: METHYLPREDNISOLONE
     Indication: PRODUCT USED FOR UNKNOWN INDICATION
     Dosage: 1000 MG, QD (EMPIRICAL HIGH-DOSE METHYLPREDNISOLONE)
     Route: 065

REACTIONS (2)
  - Myocarditis [Fatal]
  - Drug ineffective [Not Recovered/Not Resolved]
